FAERS Safety Report 7460724-9 (Version None)
Quarter: 2011Q2

REPORT INFORMATION
  Report Type: 
  Country: None (occurrence: None)
  Receive Date: 20110505
  Receipt Date: 20110427
  Transmission Date: 20111010
  Serious: Yes (Death, Other)
  Sender: FDA-Public Use
  Company Number: US-BAXTER-2011BH014587

PATIENT

DRUGS (16)
  1. METHOTREXATE [Suspect]
     Indication: ACUTE LYMPHOCYTIC LEUKAEMIA
     Route: 065
  2. METHOTREXATE [Suspect]
     Route: 037
  3. CYTARABINE [Suspect]
     Indication: PROPHYLAXIS
     Route: 042
  4. LEUCOVORIN CALCIUM [Concomitant]
     Indication: ACUTE LYMPHOCYTIC LEUKAEMIA
     Route: 042
  5. MESNA [Concomitant]
     Indication: ACUTE LYMPHOCYTIC LEUKAEMIA
     Route: 042
  6. CYTARABINE [Suspect]
     Route: 037
  7. CYTARABINE [Suspect]
     Indication: ACUTE LYMPHOCYTIC LEUKAEMIA
     Route: 042
  8. ELSPAR [Suspect]
     Indication: ACUTE LYMPHOCYTIC LEUKAEMIA
     Route: 042
  9. METHOTREXATE [Suspect]
     Indication: PROPHYLAXIS
     Route: 065
  10. ANTIBIOTICS [Concomitant]
     Indication: ANTIBIOTIC PROPHYLAXIS
     Route: 048
  11. DEXAMETHASONE [Concomitant]
     Indication: ACUTE LYMPHOCYTIC LEUKAEMIA
     Route: 065
  12. DOXORUBICIN GENERIC [Suspect]
     Indication: ACUTE LYMPHOCYTIC LEUKAEMIA
     Route: 065
  13. CYTARABINE [Suspect]
     Route: 037
  14. CYCLOPHOSPHAMIDE [Suspect]
     Indication: ACUTE LYMPHOCYTIC LEUKAEMIA
     Route: 042
  15. METHOTREXATE [Suspect]
     Route: 037
  16. VINCRISTINE SULFATE [Suspect]
     Indication: ACUTE LYMPHOCYTIC LEUKAEMIA
     Route: 042

REACTIONS (2)
  - SEPTIC SHOCK [None]
  - BONE MARROW FAILURE [None]
